FAERS Safety Report 4996006-4 (Version None)
Quarter: 2006Q2

REPORT INFORMATION
  Report Type: 
  Country: None (occurrence: None)
  Receive Date: 20060508
  Receipt Date: 20060428
  Transmission Date: 20061013
  Serious: Yes (Hospitalization)
  Sender: FDA-Public Use
  Company Number: US-MERCK-0605USA00048

PATIENT
  Age: 49 Year
  Sex: Male
  Weight: 86 kg

DRUGS (4)
  1. VIOXX [Suspect]
     Indication: ARTHRITIS
     Route: 048
     Dates: start: 20020101, end: 20020901
  2. ASPIRIN [Concomitant]
     Route: 065
  3. PLAVIX [Concomitant]
     Route: 065
  4. ALEVE (CAPLET) [Concomitant]
     Route: 065

REACTIONS (1)
  - MYOCARDIAL INFARCTION [None]
